FAERS Safety Report 25067722 (Version 1)
Quarter: 2025Q1

REPORT INFORMATION
  Report Type: 
  Country: AU (occurrence: AU)
  Receive Date: 20250312
  Receipt Date: 20250312
  Transmission Date: 20250409
  Serious: Yes (Other)
  Sender: CELLTRION
  Company Number: AU-CELLTRION INC.-2025AU007004

PATIENT

DRUGS (2)
  1. INFLIXIMAB [Suspect]
     Active Substance: INFLIXIMAB
     Indication: Product used for unknown indication
  2. METHOTREXATE [Suspect]
     Active Substance: METHOTREXATE
     Indication: Product used for unknown indication

REACTIONS (4)
  - Epstein Barr virus positive mucocutaneous ulcer [Unknown]
  - Gastrointestinal haemorrhage [Unknown]
  - Haemodynamic instability [Unknown]
  - Iron deficiency anaemia [Unknown]
